FAERS Safety Report 8922454 (Version 1)
Quarter: 2012Q4

REPORT INFORMATION
  Report Type: 
  Country: BR (occurrence: BR)
  Receive Date: 20121123
  Receipt Date: 20121123
  Transmission Date: 20130627
  Serious: Yes (Hospitalization, Other)
  Sender: FDA-Public Use
  Company Number: PHHY2012BR105531

PATIENT
  Sex: Female

DRUGS (2)
  1. FORASEQ [Suspect]
     Indication: PNEUMONIA
     Dosage: UNK
  2. ONBRIZE [Suspect]
     Dosage: 300 ug, UNK

REACTIONS (2)
  - Fall [Unknown]
  - Pneumonia [Recovering/Resolving]
